FAERS Safety Report 7179658-2 (Version None)
Quarter: 2010Q4

REPORT INFORMATION
  Report Type: 
  Country: None (occurrence: None)
  Receive Date: 20101221
  Receipt Date: 20101213
  Transmission Date: 20110411
  Serious: Yes (Hospitalization)
  Sender: FDA-Public Use
  Company Number: JP-ROCHE-724235

PATIENT
  Sex: Male
  Weight: 56 kg

DRUGS (12)
  1. AVASTIN [Suspect]
     Indication: LUNG ADENOCARCINOMA METASTATIC
     Dosage: DOSAGE IS UNCERTAIN
     Route: 041
     Dates: start: 20100209, end: 20100805
  2. PANALDINE [Suspect]
     Indication: ANGINA PECTORIS
     Dosage: DOSE FORM: PERORAL AGENT
     Route: 048
     Dates: start: 20091222
  3. ASPIRIN [Suspect]
     Indication: ANGINA PECTORIS
     Route: 048
     Dates: start: 20091222
  4. CARBOPLATIN [Concomitant]
     Route: 041
     Dates: start: 20100209, end: 20100415
  5. PACLITAXEL [Concomitant]
     Route: 041
     Dates: start: 20100209, end: 20100415
  6. TAKEPRON [Concomitant]
     Dosage: DOSE FORM: PERORAL AGENT
     Route: 048
     Dates: start: 20091223
  7. CLARITIN [Concomitant]
     Dosage: DOSE FORM: PERORAL AGENT
     Route: 048
     Dates: start: 20100201
  8. OLMETEC [Concomitant]
     Dosage: FORM: PEORAL AGENT.
     Route: 048
     Dates: start: 20100218
  9. HYPEN [Concomitant]
     Route: 048
     Dates: start: 20100210
  10. SPIRIVA [Concomitant]
     Dosage: DOSE FORM: AEROSOL ROUTE: RESPIRATORY (INHALATION)
     Route: 055
     Dates: start: 20091201
  11. TEGRETOL [Concomitant]
     Route: 048
     Dates: start: 20100708, end: 20100805
  12. TEGRETOL [Concomitant]
     Route: 048
     Dates: start: 20100806

REACTIONS (1)
  - DIVERTICULITIS INTESTINAL HAEMORRHAGIC [None]
